FAERS Safety Report 21163568 (Version 1)
Quarter: 2022Q3

REPORT INFORMATION
  Report Type: Spontaneous
  Country: US (occurrence: None)
  Receive Date: 20220802
  Receipt Date: 20220802
  Transmission Date: 20221027
  Serious: No
  Sender: FDA-Public Use
  Company Number: 2022A269857

PATIENT

DRUGS (3)
  1. FASLODEX [Suspect]
     Active Substance: FULVESTRANT
     Route: 030
  2. ZOLADEX [Suspect]
     Active Substance: GOSERELIN ACETATE
     Dosage: UNKNOWN
     Route: 058
  3. IBRANCE [Suspect]
     Active Substance: PALBOCICLIB
     Indication: Breast cancer
     Dosage: FOR 21 DAYS ON AND 7 DAYS OFF
     Route: 048
     Dates: start: 202205

REACTIONS (7)
  - Abdominal pain [Not Recovered/Not Resolved]
  - Migraine [Recovering/Resolving]
  - Insomnia [Recovering/Resolving]
  - White blood cell count decreased [Unknown]
  - Fatigue [Not Recovered/Not Resolved]
  - Constipation [Unknown]
  - Hot flush [Recovering/Resolving]
